FAERS Safety Report 4589872-8 (Version None)
Quarter: 2005Q1

REPORT INFORMATION
  Report Type: 
  Country: None (occurrence: None)
  Receive Date: 20050125
  Receipt Date: 20041027
  Transmission Date: 20050727
  Serious: No
  Sender: FDA-Public Use
  Company Number: USA040874917

PATIENT
  Age: 70 Year
  Sex: Female
  Weight: 53 kg

DRUGS (7)
  1. FORTEO [Suspect]
     Indication: MULTIPLE FRACTURES
     Dosage: 20 UG/1 DAY
     Dates: start: 20030601
  2. CALTRATE + D [Concomitant]
  3. AVALIDE [Concomitant]
  4. EXELON [Concomitant]
  5. PAXIL [Concomitant]
  6. NORVASC [Concomitant]
  7. TOPROL-XL [Concomitant]

REACTIONS (2)
  - BLOOD CALCIUM INCREASED [None]
  - SOMNOLENCE [None]
